FAERS Safety Report 14745310 (Version 6)
Quarter: 2018Q2

REPORT INFORMATION
  Report Type: Spontaneous
  Country: US (occurrence: US)
  Receive Date: 20180411
  Receipt Date: 20180628
  Transmission Date: 20180711
  Serious: No
  Sender: FDA-Public Use
  Company Number: PHEH2018US012891

PATIENT
  Sex: Female

DRUGS (1)
  1. RIVASTIGMINE. [Suspect]
     Active Substance: RIVASTIGMINE
     Indication: PRODUCT USED FOR UNKNOWN INDICATION
     Dosage: 13.3 MG QD PATCH 15 (CM2) 27 MG RIVASTIGMINE BASE
     Route: 062

REACTIONS (4)
  - Underdose [Unknown]
  - Packaging design issue [Unknown]
  - Product adhesion issue [Unknown]
  - Drug ineffective [Unknown]
